FAERS Safety Report 9524155 (Version 1)
Quarter: 2013Q1

REPORT INFORMATION
  Report Type: Spontaneous
  Country: US (occurrence: None)
  Receive Date: 20130305
  Receipt Date: 20130305
  Transmission Date: 20140127
  Serious: Yes (Hospitalization)
  Sender: FDA-Public Use
  Company Number: 163-21880-12021002

PATIENT
  Age: 61 Year
  Sex: Male

DRUGS (1)
  1. REVLIMID [Suspect]
     Indication: MYELODYSPLASTIC SYNDROME
     Dosage: 25 MG, DAILY FOR 21 DAYS ON, 7 DAYS OFF, PO
     Route: 048
     Dates: start: 20120117, end: 20120119

REACTIONS (2)
  - Rash [None]
  - Local swelling [None]
